FAERS Safety Report 7099743-3 (Version None)
Quarter: 2010Q4

REPORT INFORMATION
  Report Type: 
  Country: None (occurrence: None)
  Receive Date: 20101112
  Receipt Date: 20101105
  Transmission Date: 20110411
  Serious: Yes (Hospitalization, Other)
  Sender: FDA-Public Use
  Company Number: US-ABBOTT-10P-163-0684173-00

PATIENT
  Sex: Female
  Weight: 66.284 kg

DRUGS (4)
  1. HUMIRA [Suspect]
     Indication: CROHN'S DISEASE
     Route: 058
     Dates: start: 20100901, end: 20101001
  2. HUMIRA [Suspect]
  3. METOPROLOL [Concomitant]
     Indication: MYOCARDIAL INFARCTION
     Route: 048
  4. PLAVIX [Concomitant]
     Indication: STENT PLACEMENT
     Route: 048

REACTIONS (8)
  - CHEST PAIN [None]
  - CHRONIC OBSTRUCTIVE PULMONARY DISEASE [None]
  - DYSPNOEA [None]
  - ECHOCARDIOGRAM ABNORMAL [None]
  - MALAISE [None]
  - PYREXIA [None]
  - STAPHYLOCOCCAL INFECTION [None]
  - THROMBOSIS [None]
